FAERS Safety Report 8541801-8 (Version None)
Quarter: 2012Q3

REPORT INFORMATION
  Report Type: 
  Country: None (occurrence: None)
  Receive Date: 20120726
  Receipt Date: 20110901
  Transmission Date: 20120928
  Serious: No
  Sender: FDA-Public Use
  Company Number: US-ASTRAZENECA-2011SE52829

PATIENT
  Age: 82 Year
  Sex: Female
  Weight: 61.2 kg

DRUGS (4)
  1. INSULIN [Concomitant]
  2. SEROQUEL [Suspect]
     Indication: DEMENTIA
     Route: 048
  3. SEROQUEL [Suspect]
     Route: 048
     Dates: start: 20080401
  4. VALPORIC ACID ELIXIR [Concomitant]

REACTIONS (3)
  - DEPRESSION [None]
  - AGGRESSION [None]
  - OFF LABEL USE [None]
